FAERS Safety Report 13356111 (Version 2)
Quarter: 2017Q2

REPORT INFORMATION
  Report Type: Spontaneous
  Country: DE (occurrence: DE)
  Receive Date: 20170321
  Receipt Date: 20170419
  Transmission Date: 20170830
  Serious: Yes (Hospitalization)
  Sender: FDA-Public Use
  Company Number: DE-ASTRAZENECA-2017SE28347

PATIENT
  Age: 60 Year
  Sex: Female
  Weight: 83 kg

DRUGS (7)
  1. DULOXETINE. [Concomitant]
     Active Substance: DULOXETINE
  2. INSULIN [Concomitant]
     Active Substance: INSULIN NOS
  3. XIGDUO XR [Suspect]
     Active Substance: DAPAGLIFLOZIN PROPANEDIOL\METFORMIN HYDROCHLORIDE
     Indication: TYPE 2 DIABETES MELLITUS
     Route: 048
     Dates: start: 2016, end: 20170303
  4. GABAPENTIN. [Concomitant]
     Active Substance: GABAPENTIN
  5. ASPIRIN. [Concomitant]
     Active Substance: ASPIRIN
  6. TOUJEO [Concomitant]
     Active Substance: INSULIN GLARGINE
     Dosage: 40-80 IE
  7. CORTISONE [Concomitant]
     Active Substance: CORTISONE\HYDROCORTISONE
     Indication: UVEITIS

REACTIONS (8)
  - Hyperglycaemia [Recovered/Resolved]
  - Polyneuropathy [Unknown]
  - Glycosylated haemoglobin increased [Unknown]
  - Diabetic ketoacidosis [Unknown]
  - Cold sweat [Unknown]
  - Staphylococcal skin infection [Unknown]
  - Scratch [Unknown]
  - Angina pectoris [Unknown]

NARRATIVE: CASE EVENT DATE: 20170303
